FAERS Safety Report 23884586 (Version 1)
Quarter: 2024Q2

REPORT INFORMATION
  Report Type: Spontaneous
  Country: US (occurrence: US)
  Receive Date: 20240522
  Receipt Date: 20240522
  Transmission Date: 20240715
  Serious: Yes (Other)
  Sender: FDA-Public Use
  Company Number: US-002147023-NVSC2024US104276

PATIENT
  Age: 32 Year
  Sex: Female

DRUGS (1)
  1. COSENTYX [Suspect]
     Active Substance: SECUKINUMAB
     Indication: Ankylosing spondylitis
     Dosage: UNK
     Route: 065

REACTIONS (19)
  - Ankylosing spondylitis [Unknown]
  - Systemic lupus erythematosus [Recovered/Resolved]
  - Arthralgia [Unknown]
  - Neck pain [Unknown]
  - Iritis [Recovered/Resolved]
  - Muscle tightness [Unknown]
  - Scoliosis [Unknown]
  - Pharyngeal swelling [Unknown]
  - Dysphagia [Unknown]
  - Eustachian tube disorder [Unknown]
  - Ear discomfort [Unknown]
  - Hypoacusis [Unknown]
  - Tinnitus [Unknown]
  - Sinus congestion [Unknown]
  - Dyspnoea [Unknown]
  - Rhinorrhoea [Unknown]
  - Migraine [Unknown]
  - Hypoaesthesia [Unknown]
  - Drug ineffective [Unknown]
